FAERS Safety Report 24224954 (Version 9)
Quarter: 2025Q4

REPORT INFORMATION
  Report Type: Report from Study
  Country: CN (occurrence: CN)
  Receive Date: 20240820
  Receipt Date: 20251111
  Transmission Date: 20260118
  Serious: Yes (Other)
  Sender: TAKEDA
  Company Number: CN-TAKEDA-2024TUS082139

PATIENT
  Age: 66 Year
  Sex: Female
  Weight: 50 kg

DRUGS (5)
  1. IXAZOMIB [Suspect]
     Active Substance: IXAZOMIB
     Indication: Plasma cell myeloma refractory
     Dosage: 4 MILLIGRAM, 1/WEEK
     Dates: start: 20230729, end: 2024
  2. IXAZOMIB [Suspect]
     Active Substance: IXAZOMIB
     Indication: Plasma cell myeloma
  3. DEXAMETHASONE [Suspect]
     Active Substance: DEXAMETHASONE
     Indication: Plasma cell myeloma
     Dosage: 10 MILLIGRAM, 1/WEEK
     Dates: start: 20230729
  4. LENALIDOMIDE [Suspect]
     Active Substance: LENALIDOMIDE
     Indication: Plasma cell myeloma
     Dosage: 25 MILLIGRAM, QOD
     Dates: start: 20230729
  5. VALACYCLOVIR HYDROCHLORIDE [Concomitant]
     Active Substance: VALACYCLOVIR HYDROCHLORIDE
     Indication: Antiviral prophylaxis
     Dosage: 0.3 GRAM, QD
     Dates: start: 20230504

REACTIONS (4)
  - Agranulocytosis [Recovered/Resolved]
  - Pneumonia [Recovering/Resolving]
  - Pleural effusion [Not Recovered/Not Resolved]
  - Febrile infection [Recovering/Resolving]

NARRATIVE: CASE EVENT DATE: 20240123
